FAERS Safety Report 13019660 (Version 9)
Quarter: 2020Q2

REPORT INFORMATION
  Report Type: Spontaneous
  Country: US (occurrence: US)
  Receive Date: 20161212
  Receipt Date: 20200428
  Transmission Date: 20200713
  Serious: Yes (Other)
  Sender: FDA-Public Use
  Company Number: US-ROCHE-1801687

PATIENT
  Age: 63 Year
  Sex: Female
  Weight: 101.24 kg

DRUGS (15)
  1. ACTEMRA [Suspect]
     Active Substance: TOCILIZUMAB
     Route: 058
  2. IBUPROFEN. [Concomitant]
     Active Substance: IBUPROFEN
  3. NITROFURANTOIN. [Concomitant]
     Active Substance: NITROFURANTOIN
     Route: 048
     Dates: start: 20161206
  4. ACTEMRA [Suspect]
     Active Substance: TOCILIZUMAB
     Indication: RHEUMATOID ARTHRITIS
     Route: 058
     Dates: start: 20160510
  5. ACTEMRA [Suspect]
     Active Substance: TOCILIZUMAB
     Dosage: INJ 162MG/0.9ML PFS
     Route: 058
     Dates: start: 20161027
  6. ACTEMRA [Suspect]
     Active Substance: TOCILIZUMAB
     Dosage: 162MG/0.9ML
     Route: 058
     Dates: start: 20170413
  7. PREDNISONE. [Concomitant]
     Active Substance: PREDNISONE
     Route: 048
     Dates: start: 20160509, end: 20180608
  8. METFORMIN HYDROCHLORIDE. [Concomitant]
     Active Substance: METFORMIN HYDROCHLORIDE
     Indication: TYPE 2 DIABETES MELLITUS
     Route: 065
     Dates: start: 20160509
  9. FLUZONE HIGH-DOSE NOS [Concomitant]
     Active Substance: INFLUENZA A VIRUS A/CALIFORNIA/7/2009 X-179A (H1N1) ANTIGEN (FORMALDEHYDE INACTIVATED)\INFLUENZA A VIRUS A/VICTORIA/210/2009 X-187 (H3N2) ANTIGEN (FORMALDEHYDE INACTIVATED)\INFLUENZA B VIRUS B/BRISBANE/60/2008 ANTIGEN (FORMALDEHYDE INACTIVATED)
     Route: 030
     Dates: start: 20180608
  10. ATENOLOL. [Concomitant]
     Active Substance: ATENOLOL
     Route: 048
     Dates: start: 20160509
  11. ATORVASTATIN [Concomitant]
     Active Substance: ATORVASTATIN
     Route: 048
     Dates: start: 20160509
  12. FOLIC ACID. [Concomitant]
     Active Substance: FOLIC ACID
     Route: 048
     Dates: start: 20160509
  13. HCTZ [Concomitant]
     Active Substance: HYDROCHLOROTHIAZIDE
  14. ATORVASTATIN CALCIUM. [Concomitant]
     Active Substance: ATORVASTATIN CALCIUM
  15. LOSARTAN. [Concomitant]
     Active Substance: LOSARTAN

REACTIONS (10)
  - Pain in extremity [Unknown]
  - Pain in extremity [Not Recovered/Not Resolved]
  - Hypoaesthesia [Recovering/Resolving]
  - Urinary tract infection [Unknown]
  - Urinary tract infection [Unknown]
  - Nasopharyngitis [Unknown]
  - Paraesthesia [Recovering/Resolving]
  - Neuropathy peripheral [Recovering/Resolving]
  - Ill-defined disorder [Unknown]
  - Chills [Unknown]

NARRATIVE: CASE EVENT DATE: 20170312
